FAERS Safety Report 4961298-4 (Version None)
Quarter: 2006Q1

REPORT INFORMATION
  Report Type: 
  Country: None (occurrence: None)
  Receive Date: 20060201
  Receipt Date: 20051201
  Transmission Date: 20060701
  Serious: No
  Sender: FDA-Public Use
  Company Number: 2005PV005236

PATIENT
  Age: 62 Year
  Sex: Female
  Weight: 98.4306 kg

DRUGS (15)
  1. BYETTA [Suspect]
     Indication: DIABETES MELLITUS NON-INSULIN-DEPENDENT
     Dosage: SEE IMAGE
     Route: 058
     Dates: start: 20050726, end: 20051001
  2. BYETTA [Suspect]
     Indication: DIABETES MELLITUS NON-INSULIN-DEPENDENT
     Dosage: SEE IMAGE
     Route: 058
     Dates: start: 20051002, end: 20051110
  3. BYETTA [Suspect]
     Indication: DIABETES MELLITUS NON-INSULIN-DEPENDENT
     Dosage: SEE IMAGE
     Route: 058
     Dates: start: 20051120
  4. AVANDIA [Concomitant]
  5. PRILOSEC [Concomitant]
  6. LOZOL [Concomitant]
  7. LIPITOR [Concomitant]
  8. NORVASC [Concomitant]
  9. TOPROL-XL [Concomitant]
  10. ESTRADIOL [Concomitant]
  11. LOTENSIN [Concomitant]
  12. ALLOPURINOL [Concomitant]
  13. VALIUM [Concomitant]
  14. SINGULAIR [Concomitant]
  15. CREON [Concomitant]

REACTIONS (11)
  - ABDOMINAL PAIN UPPER [None]
  - ARTERIOSCLEROSIS [None]
  - DECREASED APPETITE [None]
  - DIARRHOEA [None]
  - INCREASED APPETITE [None]
  - NAUSEA [None]
  - RENAL MASS [None]
  - SPINAL DISORDER [None]
  - THIRST [None]
  - VOMITING [None]
  - WEIGHT DECREASED [None]
